FAERS Safety Report 4269198-2 (Version None)
Quarter: 2004Q1

REPORT INFORMATION
  Report Type: 
  Country: None (occurrence: None)
  Receive Date: 20040109
  Receipt Date: 20031229
  Transmission Date: 20041129
  Serious: Yes (Hospitalization, Other)
  Sender: FDA-Public Use
  Company Number: NSADSS2003006171

PATIENT

DRUGS (9)
  1. REMICADE [Suspect]
     Indication: RHEUMATOID ARTHRITIS
     Dosage: 500 MG, 1 IN 1 AS NECESSARY; INTRAVENOUS DRIP
     Route: 041
     Dates: start: 20020528, end: 20020528
  2. REMICADE [Suspect]
     Indication: RHEUMATOID ARTHRITIS
     Dosage: 500 MG, 1 IN 1 AS NECESSARY; INTRAVENOUS DRIP
     Route: 041
     Dates: start: 20021217, end: 20021217
  3. ARAVA [Concomitant]
  4. ALLOPURINOL [Concomitant]
  5. GLUCOTROL [Concomitant]
  6. ZOLOFT [Concomitant]
  7. PREMARIN [Concomitant]
  8. ATENOL (ATENOLOL) [Concomitant]
  9. LOTENSIN [Concomitant]

REACTIONS (5)
  - ANAEMIA [None]
  - CYST [None]
  - MALIGNANT MELANOMA STAGE III [None]
  - PELVIC MASS [None]
  - URINARY TRACT INFECTION [None]
